FAERS Safety Report 8258790-6 (Version None)
Quarter: 2012Q2

REPORT INFORMATION
  Report Type: 
  Country: None (occurrence: None)
  Receive Date: 20120403
  Receipt Date: 20120403
  Transmission Date: 20120825
  Serious: Yes (Hospitalization)
  Sender: FDA-Public Use
  Company Number: None

PATIENT
  Age: 63 Year
  Sex: Male
  Weight: 86 kg

DRUGS (1)
  1. METOPROLOL TARTRATE [Suspect]
     Dosage: 5 MG UD IV
     Route: 042
     Dates: start: 20111217, end: 20111217

REACTIONS (1)
  - SYNCOPE [None]
